FAERS Safety Report 11271093 (Version 1)
Quarter: 2015Q3

REPORT INFORMATION
  Report Type: Spontaneous
  Country: US (occurrence: US)
  Receive Date: 20150714
  Receipt Date: 20150714
  Transmission Date: 20151125
  Serious: No
  Sender: FDA-Public Use
  Company Number: US-MEDA-2015060040

PATIENT
  Age: 19 Year
  Sex: Female
  Weight: 66 kg

DRUGS (1)
  1. OPTIVAR [Suspect]
     Active Substance: AZELASTINE HYDROCHLORIDE
     Indication: EYE ALLERGY
     Route: 047
     Dates: start: 201505

REACTIONS (1)
  - Dysgeusia [Not Recovered/Not Resolved]

NARRATIVE: CASE EVENT DATE: 20150612
